FAERS Safety Report 16256239 (Version 1)
Quarter: 2019Q2

REPORT INFORMATION
  Report Type: Spontaneous
  Country: IT (occurrence: IT)
  Receive Date: 20190430
  Receipt Date: 20190430
  Transmission Date: 20190711
  Serious: Yes (Other)
  Sender: FDA-Public Use
  Company Number: IT-TEVA-2019-IT-1043093

PATIENT
  Age: 63 Year
  Sex: Female

DRUGS (6)
  1. SOLDESAM [Concomitant]
     Active Substance: DEXAMETHASONE
     Route: 042
     Dates: start: 20180418, end: 20180418
  2. RANIDIL 50 MG/5 ML SOLUZIONE INIETTABILE PER USO ENDOVENOSO [Concomitant]
     Active Substance: RANITIDINE
     Dosage: INJECTABLE SOLUTION FOR INTRAVENOUS USE
     Route: 042
     Dates: start: 20180418, end: 20180418
  3. ZOFRAN [Concomitant]
     Active Substance: ONDANSETRON HYDROCHLORIDE
     Route: 042
     Dates: start: 20180418, end: 20180418
  4. CAELYX 2 MG/ML CONCENTRATE FOR SOLUTION FOR INFUSION [Concomitant]
     Route: 042
     Dates: start: 20180418, end: 20180418
  5. CARBOPLATINO AUROBINDO 10 MG/ML CONCENTRATO PER SOLUZIONE PER INFUSION [Suspect]
     Active Substance: CARBOPLATIN
     Indication: CHEMOTHERAPY
     Route: 042
     Dates: start: 20180418, end: 20180418
  6. TRIMETON [Concomitant]
     Active Substance: CHLORPHENIRAMINE MALEATE
     Route: 042
     Dates: start: 20180418, end: 20180418

REACTIONS (3)
  - Tachycardia [Recovered/Resolved]
  - Erythema [Recovered/Resolved]
  - Dyspnoea [Recovered/Resolved]

NARRATIVE: CASE EVENT DATE: 20180418
